FAERS Safety Report 18289618 (Version 1)
Quarter: 2020Q3

REPORT INFORMATION
  Report Type: Spontaneous
  Country: US (occurrence: US)
  Receive Date: 20200921
  Receipt Date: 20200921
  Transmission Date: 20201103
  Serious: No
  Sender: FDA-Public Use
  Company Number: US-BRAINTREE LABORATORIES-190533-1

PATIENT
  Age: 61 Year
  Sex: Female
  Weight: 74.84 kg

DRUGS (1)
  1. SUPREP BOWEL PREP [Suspect]
     Active Substance: MAGNESIUM SULFATE\POTASSIUM SULFATE\SODIUM SULFATE
     Indication: COLONOSCOPY
     Dosage: 1 X 6 OZ. BOTTLE
     Route: 048
     Dates: start: 20190918, end: 20190918

REACTIONS (13)
  - Frequent bowel movements [None]
  - Haemorrhoidal haemorrhage [None]
  - Abdominal pain upper [None]
  - Anorectal swelling [None]
  - Proctalgia [None]
  - Heart rate increased [None]
  - Rectal haemorrhage [None]
  - Feeling cold [None]
  - Chills [None]
  - Faeces soft [None]
  - Product preparation error [None]
  - Skin irritation [None]
  - Tinnitus [None]

NARRATIVE: CASE EVENT DATE: 20190918
